FAERS Safety Report 10193764 (Version 1)
Quarter: 2014Q2

REPORT INFORMATION
  Report Type: Spontaneous
  Country: US (occurrence: US)
  Receive Date: 20140524
  Receipt Date: 20140524
  Transmission Date: 20141212
  Serious: No
  Sender: FDA-Public Use
  Company Number: US-SANOFI-AVENTIS-2013SA043054

PATIENT
  Age: 68 Year
  Sex: Female

DRUGS (2)
  1. SOLOSTAR [Suspect]
     Indication: DEVICE THERAPY
     Dates: start: 2007
  2. LANTUS SOLOSTAR [Suspect]
     Indication: PRODUCT USED FOR UNKNOWN INDICATION
     Dosage: DOSE:48 UNIT(S)
     Route: 051
     Dates: start: 2007

REACTIONS (1)
  - Fibromyalgia [Not Recovered/Not Resolved]
